FAERS Safety Report 20899430 (Version 1)
Quarter: 2022Q2

REPORT INFORMATION
  Report Type: Spontaneous
  Country: CN (occurrence: CN)
  Receive Date: 20220601
  Receipt Date: 20220601
  Transmission Date: 20220720
  Serious: Yes (Hospitalization, Other)
  Sender: FDA-Public Use
  Company Number: None

PATIENT
  Age: 16 Year
  Sex: Male
  Weight: 80 kg

DRUGS (12)
  1. IFOSFAMIDE [Suspect]
     Active Substance: IFOSFAMIDE
     Indication: Ewing^s sarcoma
     Dosage: 3.5 G, IFO3.5 G D1-5 NS 500 ML
     Route: 041
     Dates: start: 20220105, end: 20220109
  2. IFOSFAMIDE [Suspect]
     Active Substance: IFOSFAMIDE
     Dosage: UNK, QD, IFOSFAMIDE + SODIUM CHLORIDE, DOSE REINTRODUCED
     Route: 041
  3. ETOPOSIDE [Suspect]
     Active Substance: ETOPOSIDE
     Indication: Ewing^s sarcoma
     Dosage: 100 MG, QD, VP16 100 MG D1-5 NS 500 ML
     Route: 041
     Dates: start: 20220105, end: 20220109
  4. ETOPOSIDE [Suspect]
     Active Substance: ETOPOSIDE
     Dosage: UNK, QD, ETOPOSIDE + SODIUM CHLORIDE, DOSE REINTRODUCED
     Route: 041
  5. ETOPOSIDE [Suspect]
     Active Substance: ETOPOSIDE
     Dosage: 95 MG, QD, VP16 95 MG D1-5 NS 500 ML
     Route: 041
     Dates: start: 20220105, end: 20220109
  6. ETOPOSIDE [Suspect]
     Active Substance: ETOPOSIDE
     Dosage: UNK, QD, ETOPOSIDE + SODIUM CHLORIDE, DOSE REINTRODUCED
     Route: 041
  7. SODIUM CHLORIDE [Suspect]
     Active Substance: SODIUM CHLORIDE
     Indication: Medication dilution
     Dosage: 500 ML, QD, IFO3.5 G D1-5 NS 500 ML
     Route: 065
     Dates: start: 20220105, end: 20220109
  8. SODIUM CHLORIDE [Suspect]
     Active Substance: SODIUM CHLORIDE
     Dosage: UNK, QD, IFO3.5 G D1-5 NS 500 ML, DOSE REINTRODUCED
     Route: 041
  9. SODIUM CHLORIDE [Suspect]
     Active Substance: SODIUM CHLORIDE
     Dosage: 500 ML, QD, VP16 100 MG D1-5 NS 500 ML
     Route: 041
     Dates: start: 20220105, end: 20220109
  10. SODIUM CHLORIDE [Suspect]
     Active Substance: SODIUM CHLORIDE
     Dosage: UNK, QD, ETOPOSIDE + SODIUM CHLORIDE, DOSE REINTRODUCED
     Route: 041
  11. SODIUM CHLORIDE [Suspect]
     Active Substance: SODIUM CHLORIDE
     Dosage: 500 ML, QD, VP16 95 MG D1-5 NS 500 ML
     Route: 041
     Dates: start: 20220105, end: 20220109
  12. SODIUM CHLORIDE [Suspect]
     Active Substance: SODIUM CHLORIDE
     Dosage: UNK, QD, ETOPOSIDE + SODIUM CHLORIDE, DOSE REINTRODUCED
     Route: 041

REACTIONS (1)
  - Myelosuppression [Recovering/Resolving]

NARRATIVE: CASE EVENT DATE: 20220116
